FAERS Safety Report 7903805-5 (Version None)
Quarter: 2011Q4

REPORT INFORMATION
  Report Type: 
  Country: None (occurrence: None)
  Receive Date: 20111109
  Receipt Date: 20110506
  Transmission Date: 20120403
  Serious: No
  Sender: FDA-Public Use
  Company Number: US-BAYER-2011-039249

PATIENT
  Sex: Female

DRUGS (1)
  1. CLIMARA PRO [Suspect]
     Dosage: UNK
     Route: 062
     Dates: start: 20110401

REACTIONS (2)
  - PRODUCT ADHESION ISSUE [None]
  - DRUG INEFFECTIVE [None]
